FAERS Safety Report 8438442-X (Version None)
Quarter: 2012Q2

REPORT INFORMATION
  Report Type: 
  Country: None (occurrence: None)
  Receive Date: 20120614
  Receipt Date: 20120531
  Transmission Date: 20120825
  Serious: Yes (Hospitalization)
  Sender: FDA-Public Use
  Company Number: CHPA2012US011824

PATIENT
  Age: 57 Year
  Sex: Female

DRUGS (1)
  1. THERAFLU VAPOR PATCH [Suspect]
     Indication: CHRONIC OBSTRUCTIVE PULMONARY DISEASE
     Dosage: 1 DF, QD
     Route: 061
     Dates: start: 20120301, end: 20120301

REACTIONS (3)
  - PNEUMONIA [None]
  - OFF LABEL USE [None]
  - THERAPEUTIC RESPONSE UNEXPECTED [None]
